FAERS Safety Report 9468221 (Version 3)
Quarter: 2013Q4

REPORT INFORMATION
  Report Type: Spontaneous
  Country: US (occurrence: US)
  Receive Date: 20130821
  Receipt Date: 20131030
  Transmission Date: 20140711
  Serious: No
  Sender: FDA-Public Use
  Company Number: US-009507513-1308USA009121

PATIENT
  Age: 55 Year
  Sex: Female
  Weight: 66.21 kg

DRUGS (5)
  1. PEGINTRON [Suspect]
     Indication: HEPATITIS C
     Dosage: UNK, QW
     Route: 030
     Dates: start: 20130804, end: 20130913
  2. REBETOL [Suspect]
     Indication: HEPATITIS C
     Dosage: TOTAL DAILY DOSE: 800MG
     Route: 048
     Dates: start: 20130804, end: 20130913
  3. VICTRELIS [Suspect]
     Indication: HEPATITIS C
     Dosage: UNK
     Route: 048
     Dates: start: 20130901, end: 20130913
  4. PRILOSEC [Concomitant]
     Route: 048
  5. HYDROCHLOROTHIAZIDE [Concomitant]
     Indication: HYPERTENSION
     Route: 048

REACTIONS (28)
  - Blood pressure increased [Unknown]
  - Cough [Not Recovered/Not Resolved]
  - Insomnia [Unknown]
  - Ageusia [Unknown]
  - Dysgeusia [Unknown]
  - Dry mouth [Unknown]
  - Chest X-ray abnormal [Unknown]
  - Wheezing [Unknown]
  - Anxiety [Unknown]
  - Irritability [Unknown]
  - Heart rate increased [Unknown]
  - Disorientation [Unknown]
  - Dyspepsia [Unknown]
  - Abdominal pain upper [Unknown]
  - Diarrhoea [Unknown]
  - Influenza [Unknown]
  - Pyrexia [Unknown]
  - Nausea [Unknown]
  - Malaise [Unknown]
  - Anger [Unknown]
  - Depression [Unknown]
  - Memory impairment [Not Recovered/Not Resolved]
  - Palpitations [Unknown]
  - Dizziness [Unknown]
  - Tremor [Unknown]
  - Incorrect route of drug administration [Unknown]
  - Irritability [Unknown]
  - Anxiety [Unknown]
